FAERS Safety Report 6800458-4 (Version None)
Quarter: 2010Q2

REPORT INFORMATION
  Report Type: 
  Country: None (occurrence: None)
  Receive Date: 20100629
  Receipt Date: 20100621
  Transmission Date: 20101027
  Serious: Yes (Hospitalization)
  Sender: FDA-Public Use
  Company Number: US-BIOGENIDEC-2010BI019744

PATIENT
  Age: 60 Year
  Sex: Female
  Weight: 81 kg

DRUGS (4)
  1. TYSABRI [Suspect]
     Indication: MULTIPLE SCLEROSIS
     Route: 042
     Dates: start: 20091113
  2. TRILEPTAL [Concomitant]
  3. XANAX [Concomitant]
  4. AMLODIPINE [Concomitant]
     Route: 030
     Dates: start: 20091113

REACTIONS (2)
  - MULTIPLE SCLEROSIS RELAPSE [None]
  - NEUROMYELITIS OPTICA [None]
